FAERS Safety Report 4298045-8 (Version None)
Quarter: 2004Q1

REPORT INFORMATION
  Report Type: 
  Country: None (occurrence: None)
  Receive Date: 20040218
  Receipt Date: 20020102
  Transmission Date: 20041129
  Serious: Yes (Other)
  Sender: FDA-Public Use
  Company Number: US-BRISTOL-MYERS SQUIBB COMPANY-11757861

PATIENT
  Sex: Male

DRUGS (6)
  1. STADOL [Suspect]
     Route: 045
  2. STADOL [Suspect]
  3. CARISOPRODOL [Concomitant]
  4. DIAZEPAM [Concomitant]
  5. ALPRAZOLAM [Concomitant]
  6. ACETAMINOPHEN AND HYDROCODONE BITARTRATE [Concomitant]

REACTIONS (2)
  - DEPENDENCE [None]
  - DRUG ADDICT [None]
